FAERS Safety Report 5598773-8 (Version None)
Quarter: 2008Q1

REPORT INFORMATION
  Report Type: 
  Country: None (occurrence: None)
  Receive Date: 20080122
  Receipt Date: 20080114
  Transmission Date: 20080703
  Serious: Yes (Hospitalization)
  Sender: FDA-Public Use
  Company Number: GB-RANBAXY-2007RR-05737

PATIENT

DRUGS (4)
  1. PARACETAMOL TABLETS BP 500MG [Suspect]
     Dosage: 500 MG, UNK
     Route: 048
  2. SEROXAT [Suspect]
     Dosage: 30 MG, QD
     Route: 065
     Dates: start: 19991101, end: 20000801
  3. NUROFEN [Concomitant]
  4. CIPRAMIL [Concomitant]
     Indication: DEPRESSED MOOD
     Dosage: 20 MG, UNK

REACTIONS (4)
  - DRUG WITHDRAWAL SYNDROME [None]
  - OVERDOSE [None]
  - SUICIDAL IDEATION [None]
  - SUICIDE ATTEMPT [None]
